FAERS Safety Report 17799988 (Version 4)
Quarter: 2020Q2

REPORT INFORMATION
  Report Type: Report from Study
  Country: US (occurrence: US)
  Receive Date: 20200518
  Receipt Date: 20200615
  Transmission Date: 20200714
  Serious: Yes (Hospitalization, Other)
  Sender: FDA-Public Use
  Company Number: US-GILEAD-2020-0467427

PATIENT
  Age: 45 Year
  Sex: Male

DRUGS (3)
  1. TREPROSTINIL. [Concomitant]
     Active Substance: TREPROSTINIL
     Dosage: 25NG/KG/MIN
  2. AMBRISENTAN [Concomitant]
     Active Substance: AMBRISENTAN
  3. AMBRISENTAN [Suspect]
     Active Substance: AMBRISENTAN
     Indication: PULMONARY HYPERTENSION
     Dosage: 10 MG, QD
     Route: 048
     Dates: start: 20190926

REACTIONS (3)
  - Headache [Not Recovered/Not Resolved]
  - Catheterisation cardiac [Unknown]
  - Pneumonia [Unknown]

NARRATIVE: CASE EVENT DATE: 20200512
